FAERS Safety Report 11018439 (Version 2)
Quarter: 2015Q2

REPORT INFORMATION
  Report Type: Spontaneous
  Country: US (occurrence: US)
  Receive Date: 20150412
  Receipt Date: 20150524
  Transmission Date: 20150821
  Serious: Yes (Hospitalization)
  Sender: FDA-Public Use
  Company Number: US-JNJFOC-20131102355

PATIENT
  Age: 70 Year
  Sex: Female
  Weight: 47.63 kg

DRUGS (8)
  1. LEVOTHYROXINE [Concomitant]
     Active Substance: LEVOTHYROXINE
     Indication: HYPOTHYROIDISM
     Route: 048
  2. COUMADIN [Concomitant]
     Active Substance: WARFARIN SODIUM
     Indication: PULMONARY EMBOLISM
     Route: 048
     Dates: start: 20130825
  3. ATIVAN [Concomitant]
     Active Substance: LORAZEPAM
     Indication: ANXIETY
     Dosage: AS NEEDED
     Route: 048
  4. EC145 [Suspect]
     Active Substance: VINTAFOLIDE
     Indication: OVARIAN CANCER
     Dosage: ON DAYS 1, 3, 5, 15, 17, AND 19
     Route: 042
     Dates: start: 20130429, end: 20130429
  5. FOLIC ACID. [Suspect]
     Active Substance: FOLIC ACID
     Indication: SINGLE PHOTON EMISSION COMPUTERISED TOMOGRAM
     Dosage: ONCE
     Route: 042
     Dates: start: 20130412, end: 20130412
  6. EC20 [Suspect]
     Active Substance: TECHNETIUM TC-99M ETARFOLATIDE
     Indication: SINGLE PHOTON EMISSION COMPUTERISED TOMOGRAM
     Dosage: ONCE
     Route: 042
     Dates: start: 20130412, end: 20130412
  7. VICODIN [Concomitant]
     Active Substance: ACETAMINOPHEN\HYDROCODONE BITARTRATE
     Indication: PAIN
     Dosage: AS NEEDED
     Route: 048
     Dates: start: 20131008
  8. DOXORUBICIN [Suspect]
     Active Substance: DOXORUBICIN
     Indication: OVARIAN CANCER
     Route: 042
     Dates: start: 20130429

REACTIONS (1)
  - Rash maculo-papular [Not Recovered/Not Resolved]

NARRATIVE: CASE EVENT DATE: 20131008
